FAERS Safety Report 24622783 (Version 1)
Quarter: 2024Q4

REPORT INFORMATION
  Report Type: Report from Study
  Country: US (occurrence: US)
  Receive Date: 20241115
  Receipt Date: 20241115
  Transmission Date: 20250115
  Serious: Yes (Other)
  Sender: STALLERGENES
  Company Number: US-STALCOR-2024-AER-02530

PATIENT
  Age: 10 Year
  Sex: Female

DRUGS (2)
  1. PALFORZIA [Suspect]
     Active Substance: PEANUT
     Indication: Food allergy
     Dosage: CURRENT DISPENSED DOSE-160MG
     Route: 048
     Dates: start: 20241024
  2. PALFORZIA [Suspect]
     Active Substance: PEANUT
     Dosage: REACTIVE DOSE ADMINISTERED PRIOR TO THE EVENT ONSET.
     Route: 048
     Dates: start: 20241104

REACTIONS (3)
  - Bronchospasm [Recovered/Resolved]
  - Cough [Recovered/Resolved]
  - Throat irritation [Recovered/Resolved]

NARRATIVE: CASE EVENT DATE: 20241104
